FAERS Safety Report 4617282-3 (Version None)
Quarter: 2005Q1

REPORT INFORMATION
  Report Type: 
  Country: None (occurrence: None)
  Receive Date: 20050323
  Receipt Date: 20050317
  Transmission Date: 20050727
  Serious: Yes (Life-Threatening, Hospitalization)
  Sender: FDA-Public Use
  Company Number: 05-03-0434

PATIENT
  Age: 71 Year
  Sex: Female
  Weight: 90 kg

DRUGS (6)
  1. DIAZEPAM [Suspect]
     Indication: ANXIETY
     Dosage: 5 MG ORAL
     Route: 048
     Dates: start: 20050226, end: 20050226
  2. PREDNISOLONE [Concomitant]
  3. COTRIM [Concomitant]
  4. MS CONTIN [Concomitant]
  5. GABAPENTIN [Concomitant]
  6. FOSAMAX [Concomitant]

REACTIONS (3)
  - ATRIAL TACHYCARDIA [None]
  - FLUSHING [None]
  - URTICARIA [None]
